FAERS Safety Report 7121347-4 (Version None)
Quarter: 2010Q4

REPORT INFORMATION
  Report Type: 
  Country: None (occurrence: None)
  Receive Date: 20101124
  Receipt Date: 20101111
  Transmission Date: 20110411
  Serious: Yes (Other)
  Sender: FDA-Public Use
  Company Number: PHHY2010MX48374

PATIENT
  Sex: Male

DRUGS (3)
  1. EXFORGE [Suspect]
     Indication: HYPERTENSION
     Dosage: 160/10 MG; ONE TABLET, DAILY
     Route: 048
     Dates: start: 20081101
  2. ACCUPRIL [Concomitant]
  3. LOPRESSOR [Concomitant]

REACTIONS (5)
  - ASTHENIA [None]
  - DEAFNESS [None]
  - HYPERTENSION [None]
  - INFARCTION [None]
  - LUNG DISORDER [None]
